FAERS Safety Report 23483396 (Version 2)
Quarter: 2024Q1

REPORT INFORMATION
  Report Type: Spontaneous
  Country: US (occurrence: US)
  Receive Date: 20240205
  Receipt Date: 20240226
  Transmission Date: 20240410
  Serious: No
  Sender: FDA-Public Use
  Company Number: US-PFIZER INC-PV202400014775

PATIENT
  Age: 61 Year
  Sex: Female
  Weight: 53.2 kg

DRUGS (4)
  1. PAXLOVID [Suspect]
     Active Substance: NIRMATRELVIR\RITONAVIR
     Indication: Post-acute COVID-19 syndrome
     Dosage: [NIRMATRELVIR 300 MG]/[RITONAVIR 100 MG]; 2X/DAY
     Route: 048
  2. PAXLOVID [Suspect]
     Active Substance: NIRMATRELVIR\RITONAVIR
     Indication: Viral infection
  3. LEVOTHYROXINE SODIUM/LIOTHYRONINE SODIUM [Concomitant]
     Indication: Blood thyroid stimulating hormone decreased
     Dosage: 1 DF, DAILY
     Route: 048
  4. EQUILIBRANT [Concomitant]
     Indication: Immune enhancement therapy
     Dosage: 1 DAILY
     Dates: start: 20231017

REACTIONS (2)
  - Off label use [Unknown]
  - Intentional product misuse [Unknown]
